FAERS Safety Report 9581037 (Version 1)
Quarter: 2013Q3

REPORT INFORMATION
  Report Type: Spontaneous
  Country: US (occurrence: None)
  Receive Date: 20130916
  Receipt Date: 20130916
  Transmission Date: 20140515
  Serious: Yes (Other)
  Sender: FDA-Public Use
  Company Number: JPI-P-025832

PATIENT
  Age: 42 Year
  Sex: Female
  Weight: 77.11 kg

DRUGS (1)
  1. XYREM [Suspect]
     Indication: CATAPLEXY
     Dosage: 7 GM (3.5 GM, 2 IN 1 D) ORAL
     Route: 048
     Dates: start: 20120822, end: 2012

REACTIONS (4)
  - Weight decreased [None]
  - Decreased appetite [None]
  - Vomiting [None]
  - Dizziness [None]
